FAERS Safety Report 4840024-3 (Version None)
Quarter: 2005Q4

REPORT INFORMATION
  Report Type: 
  Country: None (occurrence: None)
  Receive Date: 20051129
  Receipt Date: 20040820
  Transmission Date: 20060501
  Serious: Yes (Life-Threatening, Hospitalization)
  Sender: FDA-Public Use
  Company Number: DE-BRISTOL-MYERS SQUIBB COMPANY-12681078

PATIENT
  Age: 75 Year
  Sex: Male

DRUGS (2)
  1. CETUXIMAB [Suspect]
     Indication: COLORECTAL CANCER
     Dosage: DISCONTINUED FROM STUDY ON 24-AUG-04.
     Route: 041
     Dates: start: 20040715, end: 20040721
  2. IRINOTECAN HCL [Suspect]
     Indication: COLORECTAL CANCER
     Dosage: PT REC'D ONE DOSE.  DISCONTINUED FROM STUDY ON 24-AUG-04.
     Route: 042
     Dates: start: 20040715, end: 20040715

REACTIONS (2)
  - COLITIS [None]
  - DIARRHOEA [None]
